FAERS Safety Report 19511210 (Version 1)
Quarter: 2021Q3

REPORT INFORMATION
  Report Type: Spontaneous
  Country: GB (occurrence: GB)
  Receive Date: 20210709
  Receipt Date: 20210709
  Transmission Date: 20211014
  Serious: Yes (Other)
  Sender: FDA-Public Use
  Company Number: GB-SUN PHARMACEUTICAL INDUSTRIES LTD-2021RR-303557

PATIENT
  Age: 49 Year
  Sex: Female

DRUGS (10)
  1. CARBOPLATIN. [Suspect]
     Active Substance: CARBOPLATIN
     Indication: ENDOMETRIAL ADENOCARCINOMA
     Dosage: SIX CYCLES
     Route: 065
  2. PACLITAXEL. [Suspect]
     Active Substance: PACLITAXEL
     Indication: ENDOMETRIAL ADENOCARCINOMA
     Dosage: SIX CYCLES, WEEKLY
     Route: 065
  3. RIFAMPIN. [Concomitant]
     Active Substance: RIFAMPIN
     Indication: ENDOMETRIAL ADENOCARCINOMA
     Dosage: ONE CYCLE
     Route: 065
     Dates: start: 201512
  4. GEMCITABINE. [Suspect]
     Active Substance: GEMCITABINE
     Indication: ENDOMETRIAL ADENOCARCINOMA
     Dosage: SIX CYCLES
     Route: 065
  5. DABRAFENIB [Concomitant]
     Active Substance: DABRAFENIB
     Indication: ENDOMETRIAL ADENOCARCINOMA
     Dosage: 150 MILLIGRAM, BID, ONE CYCLE
     Route: 065
     Dates: start: 201512
  6. TRAMETINIB [Concomitant]
     Active Substance: TRAMETINIB
     Indication: ENDOMETRIAL ADENOCARCINOMA
     Dosage: 2 MILLIGRAM, UNK
     Route: 065
  7. RABEPRAZOLE [Suspect]
     Active Substance: RABEPRAZOLE
     Indication: ENDOMETRIAL ADENOCARCINOMA
     Dosage: ONE CYCLE
     Route: 065
     Dates: start: 201512
  8. CARBOPLATIN. [Suspect]
     Active Substance: CARBOPLATIN
     Dosage: SIX CYCLES
     Route: 065
  9. NCT02223247 [Concomitant]
     Indication: ENDOMETRIAL ADENOCARCINOMA
     Dosage: SIX CYCLES, WEEKLY
     Route: 065
  10. LETROZOLE. [Suspect]
     Active Substance: LETROZOLE
     Indication: ENDOMETRIAL ADENOCARCINOMA
     Dosage: UNK
     Route: 065

REACTIONS (1)
  - Disease progression [Unknown]
